FAERS Safety Report 8074618-1 (Version None)
Quarter: 2012Q1

REPORT INFORMATION
  Report Type: 
  Country: None (occurrence: None)
  Receive Date: 20120126
  Receipt Date: 20120118
  Transmission Date: 20120608
  Serious: Yes (Hospitalization, Other)
  Sender: FDA-Public Use
  Company Number: US-ABBOTT-12P-163-0895313-00

PATIENT
  Sex: Male
  Weight: 113.5 kg

DRUGS (2)
  1. NAPROXEN (ALEVE) [Concomitant]
     Indication: PRODUCT USED FOR UNKNOWN INDICATION
  2. HUMIRA [Suspect]
     Indication: CROHN'S DISEASE
     Dates: start: 20060101

REACTIONS (16)
  - DYSSTASIA [None]
  - SENSORY DISTURBANCE [None]
  - ABDOMINAL PAIN UPPER [None]
  - FLATULENCE [None]
  - INAPPROPRIATE SCHEDULE OF DRUG ADMINISTRATION [None]
  - ABDOMINAL PAIN [None]
  - DIARRHOEA [None]
  - BACK PAIN [None]
  - COLITIS [None]
  - ABDOMINAL DISTENSION [None]
  - CONSTIPATION [None]
  - NEPHROLITHIASIS [None]
  - REGURGITATION [None]
  - ASTHENIA [None]
  - PALLOR [None]
  - GASTROINTESTINAL INFLAMMATION [None]
